FAERS Safety Report 6329273-5 (Version None)
Quarter: 2009Q3

REPORT INFORMATION
  Report Type: 
  Country: None (occurrence: None)
  Receive Date: 20090824
  Receipt Date: 20090824
  Transmission Date: 20100115
  Serious: Yes (Disabling, Other)
  Sender: FDA-Public Use
  Company Number: None

PATIENT
  Age: 39 Year
  Sex: Female
  Weight: 61.2356 kg

DRUGS (1)
  1. BALZIVA-28 [Suspect]
     Indication: CONTRACEPTION
     Dosage: 1 PILL 1 TIME PER DAY PO
     Route: 048
     Dates: start: 20090804, end: 20090807

REACTIONS (6)
  - CHEST DISCOMFORT [None]
  - HEADACHE [None]
  - HYPOAESTHESIA [None]
  - NAUSEA [None]
  - PAIN [None]
  - VISION BLURRED [None]
